FAERS Safety Report 8014805 (Version 4)
Quarter: 2012Q4

REPORT INFORMATION
  Report Type: 
  Country: JP (occurrence: JP)
  Receive Date: 20110629
  Receipt Date: 20121126
  Transmission Date: 20130627
  Serious: Yes (Life-Threatening)
  Sender: FDA-Public Use
  Company Number: JP-ROCHE-786169

PATIENT
  Age: 62 Year
  Sex: Male
  Weight: 74 kg

DRUGS (15)
  1. AVASTIN [Suspect]
     Indication: LUNG ADENOCARCINOMA METASTATIC
     Route: 041
     Dates: start: 20110531, end: 20110531
  2. PACLITAXEL [Suspect]
     Indication: LUNG ADENOCARCINOMA METASTATIC
     Route: 041
     Dates: start: 20110531, end: 20110531
  3. CARBOPLATIN [Suspect]
     Indication: LUNG ADENOCARCINOMA METASTATIC
     Route: 041
     Dates: start: 20110531, end: 20110531
  4. OLMETEC [Concomitant]
     Route: 048
  5. MEVALOTIN [Concomitant]
     Route: 048
  6. BEZATOL SR [Concomitant]
     Route: 048
  7. NIVADIL [Concomitant]
     Route: 048
  8. RESPLEN [Concomitant]
     Route: 048
  9. HOKUNALIN [Concomitant]
     Dosage: FORM: TAPE
     Route: 003
     Dates: start: 20110513, end: 20110615
  10. ALOXI [Concomitant]
     Route: 041
     Dates: start: 20110531, end: 20110531
  11. DECADRON [Concomitant]
     Route: 041
     Dates: start: 20110531, end: 20110531
  12. RANITIDINE [Concomitant]
     Route: 042
     Dates: start: 20110531, end: 20110531
  13. POLARAMINE [Concomitant]
     Route: 042
     Dates: start: 20110531, end: 20110531
  14. EMEND [Concomitant]
     Route: 048
     Dates: start: 20110531, end: 20110531
  15. EMEND [Concomitant]
     Route: 048
     Dates: start: 20110601, end: 20110602

REACTIONS (5)
  - Interstitial lung disease [Recovering/Resolving]
  - Lung disorder [Recovering/Resolving]
  - Urine output decreased [Recovered/Resolved]
  - Nausea [Recovered/Resolved]
  - Neuropathy peripheral [Unknown]
